FAERS Safety Report 19506572 (Version 3)
Quarter: 2021Q3

REPORT INFORMATION
  Report Type: Spontaneous
  Country: CO (occurrence: CO)
  Receive Date: 20210708
  Receipt Date: 20210803
  Transmission Date: 20211014
  Serious: No
  Sender: FDA-Public Use
  Company Number: CO-AMGEN-COLSP2021100651

PATIENT
  Age: 42 Year
  Sex: Male

DRUGS (2)
  1. NEULASTIM [Suspect]
     Active Substance: PEGFILGRASTIM
     Indication: OVARIAN CANCER METASTATIC
     Dosage: 6 MILLIGRAM, 6MG / 0.6ML UNIQUE
     Route: 042
  2. NEULASTIM [Suspect]
     Active Substance: PEGFILGRASTIM
     Indication: OFF LABEL USE

REACTIONS (2)
  - Device issue [Unknown]
  - Off label use [Unknown]

NARRATIVE: CASE EVENT DATE: 20210624
